FAERS Safety Report 8174341 (Version 2)
Quarter: 2016Q4

REPORT INFORMATION
  Report Type: Report from Study
  Country: JP (occurrence: JP)
  Receive Date: 20111010
  Receipt Date: 20161109
  Transmission Date: 20170207
  Serious: Yes (Hospitalization, Other)
  Sender: FDA-Public Use
  Company Number: JP-GLAXOSMITHKLINE-B0722009A

PATIENT
  Age: 68 Year
  Sex: Male

DRUGS (2)
  1. THEO-DUR [Concomitant]
     Active Substance: THEOPHYLLINE ANHYDROUS
     Indication: EMPHYSEMA
     Route: 048
     Dates: start: 20100402, end: 20100810
  2. FLUTICASONE PROPIONATE+SALMETEROL XINAFOATE 250 [Suspect]
     Active Substance: FLUTICASONE PROPIONATE\SALMETEROL XINAFOATE
     Indication: EMPHYSEMA
     Dosage: 250 ?G, BID
     Route: 055
     Dates: start: 20091007, end: 20100809

REACTIONS (4)
  - Upper respiratory tract inflammation [Recovered/Resolved]
  - Hepatic function abnormal [Recovered/Resolved]
  - Pneumonia bacterial [Recovered/Resolved]
  - Cardiac failure [Recovered/Resolved]

NARRATIVE: CASE EVENT DATE: 20091217
